FAERS Safety Report 10640633 (Version 1)
Quarter: 2014Q4

REPORT INFORMATION
  Report Type: Report from Study
  Country: US (occurrence: US)
  Receive Date: 20141209
  Receipt Date: 20141209
  Transmission Date: 20150529
  Serious: Yes (Other)
  Sender: FDA-Public Use
  Company Number: US-JNJFOC-20141202587

PATIENT
  Age: 51 Year
  Sex: Male

DRUGS (2)
  1. RIVAROXABAN [Suspect]
     Active Substance: RIVAROXABAN
     Indication: ANTICOAGULANT THERAPY
     Route: 048
  2. RIVAROXABAN [Suspect]
     Active Substance: RIVAROXABAN
     Indication: ARTERY DISSECTION
     Route: 048

REACTIONS (5)
  - Vertebral artery occlusion [Unknown]
  - Depression [Unknown]
  - Paraesthesia [Unknown]
  - Drug ineffective for unapproved indication [Unknown]
  - Off label use [Unknown]
